FAERS Safety Report 5565777-0 (Version None)
Quarter: 2007Q4

REPORT INFORMATION
  Report Type: 
  Country: None (occurrence: None)
  Receive Date: 20071213
  Receipt Date: 20071127
  Transmission Date: 20080405
  Serious: Yes (Hospitalization)
  Sender: FDA-Public Use
  Company Number: ALK_00467_2007

PATIENT
  Sex: Female
  Weight: 102.0593 kg

DRUGS (4)
  1. VIVITROL [Suspect]
     Indication: ALCOHOLISM
     Dosage: 380 MG 1XMONTH INTRAMUSCULAR
     Route: 030
     Dates: start: 20070927
  2. LAMICTAL [Concomitant]
  3. ANTIHYPERTENSIVES [Concomitant]
  4. ORAL ANTIDIABETICS [Concomitant]

REACTIONS (4)
  - INJECTION SITE INFECTION [None]
  - INJECTION SITE PAIN [None]
  - INJECTION SITE PRURITUS [None]
  - STREPTOCOCCAL INFECTION [None]
